FAERS Safety Report 9136286 (Version 1)
Quarter: 2013Q1

REPORT INFORMATION
  Report Type: Spontaneous
  Country: US (occurrence: US)
  Receive Date: 20130304
  Receipt Date: 20130304
  Transmission Date: 20140127
  Serious: No
  Sender: FDA-Public Use
  Company Number: US-ABBOTT-12P-163-0929215-00

PATIENT
  Sex: Male
  Weight: 93.07 kg

DRUGS (12)
  1. ANDROGEL 1% [Suspect]
     Indication: BLOOD TESTOSTERONE DECREASED
     Route: 061
  2. ANDROGEL 1% [Suspect]
     Dosage: 2 PUMPS DAILY
     Route: 061
     Dates: start: 2010, end: 2010
  3. ANDROGEL 1% [Suspect]
     Dosage: 3 PUMPS DAILY
     Route: 061
     Dates: start: 2010
  4. ANDROGEL 1% [Suspect]
     Dosage: 4 PUMPS DAILY
     Route: 061
  5. ANDROGEL 1.62% [Suspect]
     Indication: BLOOD TESTOSTERONE DECREASED
     Route: 061
  6. ANDROGEL 1.62% [Suspect]
     Route: 061
  7. AMLODIPINE BENAZEPRIL [Concomitant]
     Indication: HYPERTENSION
  8. TECTURNA HYDROCHLOROTHIAZIDE [Concomitant]
     Indication: HYPERTENSION
  9. B12 [Concomitant]
     Indication: PRODUCT USED FOR UNKNOWN INDICATION
  10. IBUPROFEN [Concomitant]
     Indication: PRODUCT USED FOR UNKNOWN INDICATION
  11. ACETAMINOPHEN [Concomitant]
     Indication: PRODUCT USED FOR UNKNOWN INDICATION
  12. FIBER [Concomitant]
     Indication: PRODUCT USED FOR UNKNOWN INDICATION
     Route: 048

REACTIONS (7)
  - Feeling abnormal [Not Recovered/Not Resolved]
  - Blood testosterone decreased [Unknown]
  - Testicular pain [Recovered/Resolved]
  - Feeling abnormal [Not Recovered/Not Resolved]
  - Fatigue [Not Recovered/Not Resolved]
  - Asthenia [Not Recovered/Not Resolved]
  - Depression [Not Recovered/Not Resolved]
